FAERS Safety Report 13742133 (Version 1)
Quarter: 2017Q3

REPORT INFORMATION
  Report Type: Spontaneous
  Country: US (occurrence: US)
  Receive Date: 20170711
  Receipt Date: 20170711
  Transmission Date: 20171127
  Serious: No
  Sender: FDA-Public Use
  Company Number: US-IPSEN BIOPHARMACEUTICALS, INC.-2014-6384

PATIENT
  Age: 46 Year
  Sex: Female

DRUGS (1)
  1. DYSPORT [Suspect]
     Active Substance: ABOBOTULINUMTOXINA
     Indication: SKIN WRINKLING
     Dosage: NOT REPORTED
     Route: 065
     Dates: start: 20141111, end: 20141111

REACTIONS (3)
  - Rhinorrhoea [None]
  - Musculoskeletal stiffness [None]
  - Myalgia [None]

NARRATIVE: CASE EVENT DATE: 20141111
